FAERS Safety Report 15452211 (Version 2)
Quarter: 2021Q3

REPORT INFORMATION
  Report Type: Report from Study
  Country: JP (occurrence: JP)
  Receive Date: 20181001
  Receipt Date: 20210830
  Transmission Date: 20211014
  Serious: Yes (Hospitalization)
  Sender: FDA-Public Use
  Company Number: JP-ELI_LILLY_AND_COMPANY-JP201808015020

PATIENT
  Age: 70 Year
  Sex: Male
  Weight: 61 kg

DRUGS (9)
  1. SHOSEIRYUTO [ASARUM SPP. ROOT;CINNAMOMUM CASS [Concomitant]
     Active Substance: HERBALS
     Indication: PRODUCT USED FOR UNKNOWN INDICATION
     Dosage: 6 G, UNK
     Route: 048
     Dates: end: 20180829
  2. TIGASON [ETRETINATE] [Concomitant]
     Active Substance: ETRETINATE
     Indication: PUSTULAR PSORIASIS
     Dosage: 10 MG, ALTERNATE DAY ADMINISTRATION
     Route: 048
  3. TALTZ [Suspect]
     Active Substance: IXEKIZUMAB
     Indication: PUSTULAR PSORIASIS
     Dosage: 160 MG
     Route: 058
     Dates: start: 20180118, end: 20180118
  4. OLOPATADINE. [Concomitant]
     Active Substance: OLOPATADINE
     Indication: PUSTULAR PSORIASIS
     Dosage: 10 MG, UNK
     Route: 048
     Dates: start: 201606
  5. BENIDIPINE [Concomitant]
     Active Substance: BENIDIPINE
     Dosage: 8 MG, UNK
     Route: 048
  6. FAMOTIDINE. [Concomitant]
     Active Substance: FAMOTIDINE
     Dosage: 20 MG, UNK
     Route: 048
  7. TALTZ [Suspect]
     Active Substance: IXEKIZUMAB
     Dosage: 80 MG, CYCLICAL
     Route: 058
     Dates: start: 20180201, end: 20180705
  8. HYPEN [ETODOLAC] [Concomitant]
     Active Substance: ETODOLAC
     Indication: PUSTULAR PSORIASIS
     Dosage: 400 MG, UNK
     Route: 048
     Dates: start: 20180705, end: 20180827
  9. AZILVA [Concomitant]
     Active Substance: AZILSARTAN KAMEDOXOMIL
     Dosage: 40 MG, UNK
     Route: 048

REACTIONS (1)
  - Hypersensitivity pneumonitis [Recovering/Resolving]

NARRATIVE: CASE EVENT DATE: 20180829
